FAERS Safety Report 10145718 (Version 2)
Quarter: 2014Q2

REPORT INFORMATION
  Report Type: Report from Study
  Country: JP (occurrence: JP)
  Receive Date: 20140501
  Receipt Date: 20140511
  Transmission Date: 20141212
  Serious: Yes (Death, Other)
  Sender: FDA-Public Use
  Company Number: PHHY2014JP052139

PATIENT
  Age: 69 Year
  Sex: Male
  Weight: 55 kg

DRUGS (5)
  1. INDACATEROL [Suspect]
     Indication: CHRONIC OBSTRUCTIVE PULMONARY DISEASE
     Dosage: 150 UG, DAILY
     Route: 055
     Dates: start: 20121214, end: 20130829
  2. SPIRIVA [Concomitant]
     Indication: CHRONIC OBSTRUCTIVE PULMONARY DISEASE
     Dosage: 5 UG, UNK
     Route: 055
     Dates: end: 20130829
  3. TAKEPRON [Concomitant]
     Dosage: 15 MG, UNK
     Route: 048
     Dates: end: 20130829
  4. NU-LOTAN [Concomitant]
     Dosage: 100 MG, UNK
     Route: 048
     Dates: end: 20130829
  5. LENDORMIN [Concomitant]
     Dosage: 0.3 MG, UNK
     Route: 048
     Dates: start: 20130829

REACTIONS (4)
  - Road traffic accident [Fatal]
  - Disseminated intravascular coagulation [Fatal]
  - Liver injury [Unknown]
  - Hepatic cancer metastatic [Not Recovered/Not Resolved]
